FAERS Safety Report 9117059 (Version 3)
Quarter: 2013Q2

REPORT INFORMATION
  Report Type: Report from Study
  Country: US (occurrence: US)
  Receive Date: 20130208
  Receipt Date: 20130402
  Transmission Date: 20140414
  Serious: No
  Sender: FDA-Public Use
  Company Number: US-VERTEX PHARMACEUTICALS INC.-2013-001700

PATIENT
  Sex: Male
  Weight: 82 kg

DRUGS (8)
  1. VX-950 (TELAPREVIR) [Suspect]
     Indication: HEPATITIS C
     Dosage: 750 MG, TID
     Route: 048
     Dates: start: 2013
  2. RIBASPHERE [Suspect]
     Indication: HEPATITIS C
     Dosage: 600 MG, BID
     Route: 048
     Dates: start: 2013
  3. PEGASYS [Suspect]
     Indication: HEPATITIS C
     Dosage: 180 ?G, QW
     Route: 058
     Dates: start: 2013
  4. CARVEDILOL [Concomitant]
     Dosage: UNK
  5. CRESTOR [Concomitant]
     Dosage: UNK
  6. MILK THISTLE [Concomitant]
     Dosage: 140 MG, UNK
  7. GLUCOSAMINE [Concomitant]
     Dosage: 1000 MG, UNK
  8. FISH OIL [Concomitant]
     Dosage: 500 MG, UNK

REACTIONS (8)
  - Somnolence [Unknown]
  - Insomnia [Unknown]
  - Dry skin [Unknown]
  - Fatigue [Unknown]
  - Urticaria [Unknown]
  - Rash pruritic [Unknown]
  - Skin burning sensation [Unknown]
  - Pruritus [Unknown]
